FAERS Safety Report 9920900 (Version 1)
Quarter: 2014Q1

REPORT INFORMATION
  Report Type: Spontaneous
  Country: FR (occurrence: FR)
  Receive Date: 20140225
  Receipt Date: 20140225
  Transmission Date: 20141002
  Serious: Yes (Other)
  Sender: FDA-Public Use
  Company Number: FR-ABBVIE-14P-056-1204007-00

PATIENT
  Age: 45 Year
  Sex: Male

DRUGS (4)
  1. NORVIR [Suspect]
     Indication: HIV INFECTION
     Route: 048
     Dates: start: 20140130
  2. BACTRIM [Suspect]
     Indication: PROPHYLAXIS
     Dates: start: 20140120, end: 20140202
  3. LAMIVUDINE [Suspect]
     Indication: HIV INFECTION
     Dosage: 600 MG/300 MG
     Route: 048
     Dates: start: 20140130
  4. DARUNAVIR [Suspect]
     Indication: HIV INFECTION
     Route: 048
     Dates: start: 20140130

REACTIONS (4)
  - Pyrexia [Recovered/Resolved with Sequelae]
  - Rash maculo-papular [Recovered/Resolved with Sequelae]
  - Transaminases increased [Recovered/Resolved with Sequelae]
  - Rash erythematous [Recovered/Resolved with Sequelae]
